FAERS Safety Report 7357320-0 (Version None)
Quarter: 2011Q1

REPORT INFORMATION
  Report Type: 
  Country: None (occurrence: None)
  Receive Date: 20110308
  Receipt Date: 20110222
  Transmission Date: 20110831
  Serious: Yes (Other)
  Sender: FDA-Public Use
  Company Number: CPL-2011-0002

PATIENT
  Age: 30 Year
  Sex: Male

DRUGS (3)
  1. LIOTHYRONINE SODIUM [Suspect]
     Indication: MAJOR DEPRESSION
     Dosage: 50 MG, QD, ORAL
     Route: 048
  2. SERTRALINE HYDROCHLORIDE [Suspect]
     Indication: MAJOR DEPRESSION
     Dosage: 100 MG, QD, 50 MG, QD FOR ONE WEEK,
  3. REBOXETINE [Suspect]
     Indication: MAJOR DEPRESSION
     Dosage: 8 MG, QD, 4 MG, QD FOR ONE WEEK,

REACTIONS (13)
  - DEPRESSION [None]
  - BRUXISM [None]
  - FEELING ABNORMAL [None]
  - CHEST DISCOMFORT [None]
  - FEAR [None]
  - CONDITION AGGRAVATED [None]
  - RESTLESSNESS [None]
  - IRRITABILITY [None]
  - DRUG INTERACTION [None]
  - ANXIETY [None]
  - PANIC ATTACK [None]
  - PALPITATIONS [None]
  - SLEEP DISORDER [None]
